FAERS Safety Report 4373038-0 (Version None)
Quarter: 2004Q2

REPORT INFORMATION
  Report Type: 
  Country: None (occurrence: None)
  Receive Date: 20040603
  Receipt Date: 20040518
  Transmission Date: 20050107
  Serious: Yes (Hospitalization, Other)
  Sender: FDA-Public Use
  Company Number: USA040567893

PATIENT
  Age: 54 Year
  Sex: Female

DRUGS (3)
  1. ZYPREXA [Suspect]
     Indication: MOOD SWINGS
     Dates: start: 20040501
  2. ZYPREXA [Suspect]
     Indication: PARANOIA
     Dates: start: 20040501
  3. LEXAPRO [Concomitant]

REACTIONS (4)
  - IDIOPATHIC THROMBOCYTOPENIC PURPURA [None]
  - STEVENS-JOHNSON SYNDROME [None]
  - THERAPY NON-RESPONDER [None]
  - TREATMENT NONCOMPLIANCE [None]
